FAERS Safety Report 7240082-5 (Version None)
Quarter: 2011Q1

REPORT INFORMATION
  Report Type: 
  Country: None (occurrence: None)
  Receive Date: 20110119
  Receipt Date: 20110119
  Transmission Date: 20110831
  Serious: No
  Sender: FDA-Public Use
  Company Number: None

PATIENT
  Age: 55 Year
  Sex: Male
  Weight: 140.6151 kg

DRUGS (1)
  1. CIPRO [Suspect]
     Indication: RESPIRATORY TRACT INFECTION
     Dates: start: 20101229, end: 20110103

REACTIONS (3)
  - PAIN IN EXTREMITY [None]
  - ACTIVITIES OF DAILY LIVING IMPAIRED [None]
  - OEDEMA PERIPHERAL [None]
